FAERS Safety Report 5794269-9 (Version None)
Quarter: 2008Q2

REPORT INFORMATION
  Report Type: 
  Country: None (occurrence: None)
  Receive Date: 20080627
  Receipt Date: 20080617
  Transmission Date: 20081010
  Serious: Yes (Other)
  Sender: FDA-Public Use
  Company Number: US-PFIZER INC-2008051720

PATIENT
  Sex: Male
  Weight: 104.54 kg

DRUGS (5)
  1. CHANTIX [Suspect]
     Indication: SMOKING CESSATION THERAPY
  2. METOPROLOL [Concomitant]
  3. INSULIN [Concomitant]
  4. CHOLESTEROL [Concomitant]
  5. ASPIRIN [Concomitant]

REACTIONS (1)
  - AGGRESSION [None]
